FAERS Safety Report 5340993-1 (Version None)
Quarter: 2007Q2

REPORT INFORMATION
  Report Type: 
  Country: None (occurrence: None)
  Receive Date: 20070405
  Receipt Date: 20070123
  Transmission Date: 20071010
  Serious: No
  Sender: FDA-Public Use
  Company Number: US200701004743

PATIENT
  Age: 84 Year
  Sex: Male

DRUGS (13)
  1. CYMBALTA [Suspect]
     Indication: DEPRESSION
     Dosage: 30 MG
     Dates: start: 20070101, end: 20070101
  2. ELMIRON [Concomitant]
  3. FUROSEMIDE [Concomitant]
  4. AVANDIA [Concomitant]
  5. METOPROLOL TARTRATE [Concomitant]
  6. ASPIRIN [Concomitant]
  7. LOPID [Concomitant]
  8. ZETIA [Concomitant]
  9. COZAAR [Concomitant]
  10. OXYCONTIN [Concomitant]
  11. CARISOPRODOL (CARISOPRODOL) [Concomitant]
  12. ZELNORM [Concomitant]
  13. TESTOSTERONE [Concomitant]

REACTIONS (2)
  - EYE MOVEMENT DISORDER [None]
  - VISION BLURRED [None]
